FAERS Safety Report 14369113 (Version 2)
Quarter: 2018Q1

REPORT INFORMATION
  Report Type: Spontaneous
  Country: US (occurrence: US)
  Receive Date: 20180109
  Receipt Date: 20180228
  Transmission Date: 20180509
  Serious: Yes (Other)
  Sender: FDA-Public Use
  Company Number: US-DRREDDYS-DRL/USA/18/0095638

PATIENT
  Age: 56 Year
  Sex: Male

DRUGS (3)
  1. MONTELUKAST [Suspect]
     Active Substance: MONTELUKAST SODIUM
     Indication: ASTHMA
     Route: 065
  2. ADVAIR HFA [Concomitant]
     Active Substance: FLUTICASONE PROPIONATE\SALMETEROL XINAFOATE
     Indication: ASTHMA
     Route: 065
  3. ALBUTEROL HFA [Concomitant]
     Active Substance: ALBUTEROL SULFATE
     Indication: ASTHMA
     Dosage: POWDER FOR INHALATION, 100/50 MICROGRAM
     Route: 055

REACTIONS (5)
  - Anxiety [Recovering/Resolving]
  - Insomnia [Recovering/Resolving]
  - Panic disorder [Recovered/Resolved]
  - Thinking abnormal [Unknown]
  - Nasal congestion [Unknown]
